FAERS Safety Report 16454337 (Version 3)
Quarter: 2019Q3

REPORT INFORMATION
  Report Type: Report from Study
  Country: MX (occurrence: MX)
  Receive Date: 20190619
  Receipt Date: 20190723
  Transmission Date: 20191004
  Serious: No
  Sender: FDA-Public Use
  Company Number: PHHY2019MX140946

PATIENT
  Sex: Male
  Weight: 63 kg

DRUGS (7)
  1. ADALAT [Concomitant]
     Active Substance: NIFEDIPINE
     Indication: HYPERTENSION
     Dosage: 1 DF, Q12H
     Route: 048
  2. SOMAZINA [Concomitant]
     Active Substance: CITICOLINE
     Indication: NONINFECTIVE ENCEPHALITIS
     Dosage: 1 DF, Q12H
     Route: 048
     Dates: start: 201903
  3. ESPABION [Concomitant]
     Indication: CONSTIPATION
     Dosage: 1 DF, UNK (BEFORE EATING)
     Route: 048
     Dates: start: 201903
  4. RISPERDAL [Concomitant]
     Active Substance: RISPERIDONE
     Indication: CEREBRAL HAEMORRHAGE
     Dosage: 1 DF, QD
     Route: 048
     Dates: start: 201903
  5. DIOVAN [Suspect]
     Active Substance: VALSARTAN
     Indication: HYPERTENSION
     Dosage: 1 DF, BID
     Route: 048
     Dates: start: 201903
  6. OMEPRAZOLE. [Concomitant]
     Active Substance: OMEPRAZOLE
     Indication: GASTROINTESTINAL DISORDER PROPHYLAXIS
     Dosage: 1 DF, QD
     Route: 048
     Dates: start: 201903
  7. EPAMIN [Concomitant]
     Active Substance: PHENYTOIN SODIUM
     Indication: SEIZURE PROPHYLAXIS
     Dosage: 1 DF, Q8H
     Route: 048
     Dates: start: 201903

REACTIONS (3)
  - Product prescribing error [Unknown]
  - Malaise [Unknown]
  - Inappropriate schedule of product administration [Unknown]
